FAERS Safety Report 5068246-X (Version None)
Quarter: 2006Q3

REPORT INFORMATION
  Report Type: 
  Country: None (occurrence: None)
  Receive Date: 20060802
  Receipt Date: 20050621
  Transmission Date: 20061208
  Serious: Yes (Hospitalization)
  Sender: FDA-Public Use
  Company Number: US-BRISTOL-MYERS SQUIBB COMPANY-13010855

PATIENT
  Age: 80 Year
  Sex: Female
  Weight: 50 kg

DRUGS (9)
  1. COUMADIN [Suspect]
     Indication: THROMBOSIS PROPHYLAXIS
     Dosage: ON VARYING DOSES FOR YEARS
     Route: 048
  2. AMOXICILLIN [Suspect]
     Indication: DENTAL DISORDER PROPHYLAXIS
     Dosage: 500MG; 4 CAPLETS PRIOR TO DENTAL WORK
     Route: 048
     Dates: start: 20050101
  3. FOLIC ACID [Concomitant]
     Dosage: 1 TABLET ONCE DAY FOR ^YEARS^
  4. LEVOXYL [Concomitant]
     Dosage: .05-0.1MG; 1 TABLET ONCE DAY FOR ^YEARS^
  5. NEXIUM [Concomitant]
     Dosage: 1 TABLET ONCE DAY FOR ^YEARS^
  6. PLETAL [Concomitant]
     Dosage: 1 TABLET ONCE DAY FOR ^YEARS^
  7. REMERON [Concomitant]
     Dosage: 1 TABLET ONCE DAY FOR ^YEARS^
  8. TOPROL-XL [Concomitant]
     Dosage: 1 TABLET ONCE DAY FOR ^YEARS^
  9. ZOCOR [Concomitant]
     Dosage: 1 TABLET ONCE DAY FOR ^YEARS^

REACTIONS (2)
  - HAEMATOCHEZIA [None]
  - INTERNATIONAL NORMALISED RATIO INCREASED [None]
